FAERS Safety Report 8177240-1 (Version None)
Quarter: 2012Q1

REPORT INFORMATION
  Report Type: 
  Country: None (occurrence: None)
  Receive Date: 20120301
  Receipt Date: 20120223
  Transmission Date: 20120608
  Serious: Yes (Hospitalization, Other)
  Sender: FDA-Public Use
  Company Number: US-BAYER-200940680NA

PATIENT
  Age: 81 Year
  Sex: Female
  Weight: 52.608 kg

DRUGS (24)
  1. NORCURON [Concomitant]
     Indication: PRODUCT USED FOR UNKNOWN INDICATION
     Dosage: 14
     Route: 042
     Dates: start: 20040112, end: 20040112
  2. PROTAMINE SULFATE [Concomitant]
     Indication: PRODUCT USED FOR UNKNOWN INDICATION
     Dosage: 200 MG, UNK
     Route: 042
     Dates: start: 20040112, end: 20040112
  3. AMLODIPINE [Concomitant]
     Dosage: 10 MG, QD
     Route: 048
  4. TRASYLOL [Suspect]
     Indication: CORONARY ARTERY BYPASS
     Dosage: 100 ML, UNK
     Route: 042
     Dates: start: 20040112, end: 20040112
  5. VALIUM [Concomitant]
     Indication: PRODUCT USED FOR UNKNOWN INDICATION
     Dosage: 10 MG, UNK
     Route: 042
     Dates: start: 20040112, end: 20040112
  6. MANNITOL [Concomitant]
     Indication: PRODUCT USED FOR UNKNOWN INDICATION
     Dosage: 12.5 G, UNK
     Route: 042
     Dates: start: 20040112, end: 20040112
  7. PROTONIX [Concomitant]
     Dosage: 40 MG, QD
     Route: 048
  8. HEPARIN [Concomitant]
     Indication: PRODUCT USED FOR UNKNOWN INDICATION
     Dosage: 550 MG, UNK
     Route: 042
     Dates: start: 20040112, end: 20040112
  9. EPOETIN NOS [Concomitant]
     Dosage: 20000 U, TIW
     Route: 042
  10. SUFENTA PRESERVATIVE FREE [Concomitant]
     Indication: PRODUCT USED FOR UNKNOWN INDICATION
     Dosage: 3 ML, UNK
     Route: 042
     Dates: start: 20040112, end: 20040112
  11. ZINACEF [Concomitant]
     Indication: PRODUCT USED FOR UNKNOWN INDICATION
     Dosage: 1.5 G, UNK
     Route: 042
     Dates: start: 20040112, end: 20040112
  12. LEVAQUIN [Concomitant]
     Dosage: 250 MG, QD
     Route: 048
  13. DILAUDID [Concomitant]
     Indication: PRODUCT USED FOR UNKNOWN INDICATION
     Dosage: 1 MG, UNK
     Route: 042
     Dates: start: 20040106
  14. ACETYLSALICYLIC ACID SRT [Concomitant]
     Dosage: 81 MG, QD
     Route: 048
  15. VERSED [Concomitant]
     Indication: PRODUCT USED FOR UNKNOWN INDICATION
     Dosage: 1 MG, UNK
     Route: 042
     Dates: start: 20040106
  16. VERSED [Concomitant]
     Dosage: 5 MG, UNK
     Route: 042
     Dates: start: 20040112, end: 20040112
  17. PROPOFOL [Concomitant]
     Indication: PRODUCT USED FOR UNKNOWN INDICATION
     Dosage: 15
     Route: 042
     Dates: start: 20040112, end: 20040112
  18. ALPRAZOLAM [Concomitant]
     Dosage: 0.25 MG, TID
     Route: 048
  19. TEMAZEPAM [Concomitant]
     Dosage: 30 MG, UNK
     Route: 048
  20. FERRLECIT [Concomitant]
     Dosage: UNK UNK, QOD
     Route: 042
  21. INTEGRILIN [Concomitant]
     Indication: PRODUCT USED FOR UNKNOWN INDICATION
     Dosage: 75MG/100ML
     Route: 042
     Dates: start: 20040106
  22. WELCHOL [Concomitant]
     Dosage: 2 DF, BID
     Route: 048
  23. FOSAMAX [Concomitant]
     Dosage: 1 DF/WEEK
     Route: 048
  24. OMEPRAZOLE [Concomitant]
     Dosage: 20 MG, QD
     Route: 048

REACTIONS (12)
  - RENAL INJURY [None]
  - UNEVALUABLE EVENT [None]
  - ANHEDONIA [None]
  - RENAL FAILURE [None]
  - EMOTIONAL DISTRESS [None]
  - RENAL IMPAIRMENT [None]
  - ANXIETY [None]
  - PSYCHOLOGICAL TRAUMA [None]
  - PAIN [None]
  - STRESS [None]
  - FEAR [None]
  - INJURY [None]
